FAERS Safety Report 8347442-X (Version None)
Quarter: 2012Q2

REPORT INFORMATION
  Report Type: 
  Country: None (occurrence: None)
  Receive Date: 20120509
  Receipt Date: 20120503
  Transmission Date: 20120825
  Serious: Yes (Hospitalization)
  Sender: FDA-Public Use
  Company Number: DE-AMGEN-DEUCT2012017089

PATIENT
  Age: 71 Year
  Sex: Male

DRUGS (4)
  1. EPIRUBICIN [Concomitant]
     Indication: GASTROOESOPHAGEAL CANCER
     Dosage: 50 MG/M2, UNK
     Route: 042
     Dates: start: 20111201
  2. CAPECITABINE [Concomitant]
     Indication: GASTROOESOPHAGEAL CANCER
     Dosage: 625 MG, BID
     Route: 048
     Dates: start: 20111201
  3. PANITUMUMAB [Suspect]
     Indication: GASTROOESOPHAGEAL CANCER
     Dosage: 7.2 MG/KG, UNK
     Route: 042
     Dates: start: 20111201
  4. CISPLATIN [Concomitant]
     Indication: GASTROOESOPHAGEAL CANCER
     Dosage: 60 MG/M2, UNK
     Route: 042
     Dates: start: 20111201

REACTIONS (3)
  - RASH [None]
  - NAIL DISORDER [None]
  - DECREASED APPETITE [None]
